FAERS Safety Report 16774861 (Version 1)
Quarter: 2019Q3

REPORT INFORMATION
  Report Type: Spontaneous
  Country: US (occurrence: US)
  Receive Date: 20190905
  Receipt Date: 20190905
  Transmission Date: 20191005
  Serious: No
  Sender: FDA-Public Use
  Company Number: US-ASTRAZENECA-2019SF22771

PATIENT
  Sex: Female
  Weight: 51.5 kg

DRUGS (2)
  1. DALIRESP [Suspect]
     Active Substance: ROFLUMILAST
     Dosage: 50 MCG HALF TAB DAILY
     Route: 048
  2. TYVASO [Suspect]
     Active Substance: TREPROSTINIL
     Indication: PULMONARY ARTERIAL HYPERTENSION
     Dosage: 3-9 BREATHS INHALED, FOUR TIMES A DAY
     Route: 055
     Dates: start: 20190813

REACTIONS (4)
  - Nausea [Unknown]
  - Pulmonary arterial hypertension [Unknown]
  - Retching [Unknown]
  - Blood glucose fluctuation [Unknown]
